FAERS Safety Report 6261808-3 (Version None)
Quarter: 2009Q3

REPORT INFORMATION
  Report Type: 
  Country: None (occurrence: None)
  Receive Date: 20090702
  Receipt Date: 20090304
  Transmission Date: 20100115
  Serious: No
  Sender: FDA-Public Use
  Company Number: 1000005060

PATIENT
  Sex: Male

DRUGS (3)
  1. BYSTOLIC [Suspect]
     Dosage: 2.5 MG (2.5 MG, 1 IN 1 D), ORAL
     Route: 048
     Dates: start: 20090101
  2. LOTREL [Concomitant]
  3. HYTRIN [Concomitant]

REACTIONS (1)
  - EPISTAXIS [None]
